FAERS Safety Report 11612774 (Version 1)
Quarter: 2015Q4

REPORT INFORMATION
  Report Type: Spontaneous
  Country: US (occurrence: US)
  Receive Date: 20151008
  Receipt Date: 20151008
  Transmission Date: 20160304
  Serious: Yes (Other)
  Sender: FDA-Public Use
  Company Number: US-JNJFOC-20150919106

PATIENT
  Age: 37 Year
  Sex: Female

DRUGS (2)
  1. NUCYNTA [Suspect]
     Active Substance: TAPENTADOL HYDROCHLORIDE
     Indication: BACK PAIN
     Route: 048
     Dates: start: 2011, end: 20150911
  2. NUCYNTA ER [Suspect]
     Active Substance: TAPENTADOL HYDROCHLORIDE
     Indication: BACK PAIN
     Route: 048
     Dates: start: 2011, end: 20150911

REACTIONS (4)
  - Withdrawal syndrome [Not Recovered/Not Resolved]
  - Drug prescribing error [Unknown]
  - Overdose [Unknown]
  - Drug titration error [Unknown]

NARRATIVE: CASE EVENT DATE: 2011
